FAERS Safety Report 24069204 (Version 2)
Quarter: 2024Q3

REPORT INFORMATION
  Report Type: Spontaneous
  Country: CA (occurrence: CA)
  Receive Date: 20240710
  Receipt Date: 20240710
  Transmission Date: 20241017
  Serious: No
  Sender: ROCHE
  Company Number: CA-ROCHE-3494772

PATIENT
  Age: 68 Year
  Sex: Female

DRUGS (1)
  1. ALECTINIB [Suspect]
     Active Substance: ALECTINIB
     Indication: Non-small cell lung cancer metastatic
     Route: 065

REACTIONS (5)
  - Sensitive skin [Unknown]
  - Chromaturia [Unknown]
  - Thirst [Unknown]
  - Hepatic enzyme increased [Unknown]
  - Hypothyroidism [Unknown]
